FAERS Safety Report 25952224 (Version 1)
Quarter: 2025Q4

REPORT INFORMATION
  Report Type: Spontaneous
  Country: US (occurrence: US)
  Receive Date: 20251023
  Receipt Date: 20251023
  Transmission Date: 20260117
  Serious: No
  Sender: ROCHE
  Company Number: US-ROCHE-10000413293

PATIENT
  Sex: Female

DRUGS (1)
  1. XOLAIR [Suspect]
     Active Substance: OMALIZUMAB
     Indication: Urticaria
     Dosage: STRENGTH 300 MG/2 ML
     Route: 058
     Dates: start: 202507

REACTIONS (2)
  - Swollen tongue [Recovering/Resolving]
  - Urticaria [Recovering/Resolving]
